FAERS Safety Report 6735601-9 (Version None)
Quarter: 2010Q2

REPORT INFORMATION
  Report Type: 
  Country: None (occurrence: None)
  Receive Date: 20100521
  Receipt Date: 20100514
  Transmission Date: 20101027
  Serious: Yes (Hospitalization)
  Sender: FDA-Public Use
  Company Number: US-RB-009321-10

PATIENT
  Sex: Female

DRUGS (3)
  1. SUBOXONE [Suspect]
     Route: 064
     Dates: start: 20090101, end: 20090201
  2. SUBOXONE [Suspect]
     Dosage: MOTHER TOOK VARIOUS DOSES
     Route: 064
     Dates: start: 20090201, end: 20090301
  3. METHADONE [Suspect]
     Dosage: MOTHER TOOK 5 MG X 2 DAYS
     Route: 064

REACTIONS (2)
  - DRUG EXPOSURE DURING PREGNANCY [None]
  - PREMATURE BABY [None]
